FAERS Safety Report 7559061-3 (Version None)
Quarter: 2011Q2

REPORT INFORMATION
  Report Type: 
  Country: None (occurrence: None)
  Receive Date: 20110525
  Receipt Date: 20110308
  Transmission Date: 20111010
  Serious: No
  Sender: FDA-Public Use
  Company Number: 324693

PATIENT
  Sex: Female

DRUGS (2)
  1. VICTOZA [Suspect]
     Indication: PRODUCT USED FOR UNKNOWN INDICATION
     Dosage: SUBCUTANEOUS, SUBCUTANEOUS
     Route: 058
  2. VICTOZA [Suspect]

REACTIONS (4)
  - CONSTIPATION [None]
  - DECREASED APPETITE [None]
  - ABDOMINAL DISCOMFORT [None]
  - APHAGIA [None]
